FAERS Safety Report 10035637 (Version 3)
Quarter: 2014Q2

REPORT INFORMATION
  Report Type: Report from Study
  Country: ES (occurrence: ES)
  Receive Date: 20140325
  Receipt Date: 20140428
  Transmission Date: 20141212
  Serious: Yes (Other)
  Sender: FDA-Public Use
  Company Number: ES-PFIZER INC-2014031878

PATIENT
  Age: 70 Year
  Sex: Male
  Weight: 67 kg

DRUGS (4)
  1. INLYTA [Suspect]
     Indication: THYROID CANCER
     Dosage: 5 MG/24H
     Route: 048
     Dates: start: 20130703, end: 20131220
  2. ZYLORIC ^FAES^ [Concomitant]
     Indication: HYPERURICAEMIA
     Dosage: 300 MG, 24H
     Route: 048
  3. OMEPRAZOL [Concomitant]
     Indication: PROPHYLAXIS AGAINST GASTROINTESTINAL ULCER
     Dosage: 20 MG, 24H
     Route: 048
  4. HYDROCHLOROTHIAZIDE [Concomitant]

REACTIONS (2)
  - Left ventricular dysfunction [Recovering/Resolving]
  - Electrocardiogram QT prolonged [Not Recovered/Not Resolved]
